FAERS Safety Report 4399384-2 (Version None)
Quarter: 2004Q2

REPORT INFORMATION
  Report Type: 
  Country: None (occurrence: None)
  Receive Date: 20040607
  Receipt Date: 20040220
  Transmission Date: 20050107
  Serious: No
  Sender: FDA-Public Use
  Company Number: US-SHR-04-022620

PATIENT
  Age: 50 Year
  Sex: Male

DRUGS (2)
  1. CAMPATH [Suspect]
     Indication: CHRONIC LYMPHOCYTIC LEUKAEMIA
     Dosage: 3 MG, 1 DOSE, INTRAVENOUS
     Route: 042
     Dates: start: 20040216, end: 20040216
  2. CAMPATH [Suspect]
     Indication: CHRONIC LYMPHOCYTIC LEUKAEMIA
     Dosage: 3 MG, 1 DOSE, INTRAVENOUS
     Route: 042
     Dates: start: 20040218, end: 20040218

REACTIONS (1)
  - CONFUSIONAL STATE [None]
